FAERS Safety Report 5585269-2 (Version None)
Quarter: 2008Q1

REPORT INFORMATION
  Report Type: 
  Country: None (occurrence: None)
  Receive Date: 20080109
  Receipt Date: 20080103
  Transmission Date: 20080703
  Serious: Yes (Other)
  Sender: FDA-Public Use
  Company Number: US-JNJFOC-20080100727

PATIENT
  Sex: Female
  Weight: 49.9 kg

DRUGS (5)
  1. REMICADE [Suspect]
     Indication: RHEUMATOID ARTHRITIS
     Route: 042
  2. DARVOCET [Concomitant]
     Indication: PAIN
  3. PRINIVIL [Concomitant]
     Indication: BLOOD PRESSURE ABNORMAL
  4. CLARITIN [Concomitant]
     Indication: MULTIPLE ALLERGIES
  5. PREDNISONE TAB [Concomitant]

REACTIONS (1)
  - MACULAR DEGENERATION [None]
